FAERS Safety Report 7154171-7 (Version None)
Quarter: 2010Q4

REPORT INFORMATION
  Report Type: 
  Country: None (occurrence: None)
  Receive Date: 20101124
  Receipt Date: 20101112
  Transmission Date: 20110411
  Serious: No
  Sender: FDA-Public Use
  Company Number: 021959

PATIENT
  Age: 45 Year
  Sex: Female

DRUGS (1)
  1. KEPPRA [Suspect]
     Dosage: (2000 MG INTRAVENOUS (NOT OTHERWISE SPECIFIED))
     Route: 042

REACTIONS (1)
  - COAGULATION TEST ABNORMAL [None]
